FAERS Safety Report 14363375 (Version 1)
Quarter: 2018Q1

REPORT INFORMATION
  Report Type: Spontaneous
  Country: US (occurrence: US)
  Receive Date: 20180105
  Receipt Date: 20180105
  Transmission Date: 20180509
  Serious: Yes (Other)
  Sender: FDA-Public Use
  Company Number: None

PATIENT
  Age: 3 Year
  Sex: Female
  Weight: 18.2 kg

DRUGS (1)
  1. JADENU [Suspect]
     Active Substance: DEFERASIROX
     Indication: ATRIAL SEPTAL DEFECT
     Dosage: 180MG 3TABLET QD BY MOUTH
     Route: 048
     Dates: start: 20160329

REACTIONS (2)
  - Epistaxis [None]
  - Hair texture abnormal [None]

NARRATIVE: CASE EVENT DATE: 20171028
